FAERS Safety Report 7758175-2 (Version None)
Quarter: 2011Q3

REPORT INFORMATION
  Report Type: 
  Country: None (occurrence: None)
  Receive Date: 20110919
  Receipt Date: 20110912
  Transmission Date: 20111222
  Serious: No
  Sender: FDA-Public Use
  Company Number: US-BIOGENIDEC-2011BI034888

PATIENT
  Age: 52 Year
  Sex: Female

DRUGS (3)
  1. AVONEX [Suspect]
     Indication: MULTIPLE SCLEROSIS
     Route: 030
     Dates: start: 20020501
  2. AVONEX [Suspect]
     Route: 030
     Dates: start: 19990601
  3. AVONEX [Suspect]
     Route: 030
     Dates: start: 20090101

REACTIONS (2)
  - BALANCE DISORDER [None]
  - MUSCULOSKELETAL DISORDER [None]
